FAERS Safety Report 26108395 (Version 1)
Quarter: 2025Q4

REPORT INFORMATION
  Report Type: Spontaneous
  Country: US (occurrence: US)
  Receive Date: 20251201
  Receipt Date: 20251201
  Transmission Date: 20260117
  Serious: No
  Sender: PFIZER
  Company Number: US-PFIZER INC-202500232277

PATIENT

DRUGS (1)
  1. PRISTIQ EXTENDED-RELEASE [Suspect]
     Active Substance: DESVENLAFAXINE SUCCINATE
     Dosage: UNK

REACTIONS (10)
  - Nasopharyngitis [Unknown]
  - Sinusitis [Unknown]
  - Sneezing [Unknown]
  - Asthenopia [Unknown]
  - Facial discomfort [Unknown]
  - Oropharyngeal pain [Unknown]
  - Malaise [Unknown]
  - Hypersensitivity [Unknown]
  - Fatigue [Unknown]
  - Withdrawal syndrome [Unknown]
